FAERS Safety Report 23718917 (Version 1)
Quarter: 2024Q2

REPORT INFORMATION
  Report Type: Report from Study
  Country: US (occurrence: US)
  Receive Date: 20240408
  Receipt Date: 20240408
  Transmission Date: 20240715
  Serious: Yes (Other)
  Sender: FDA-Public Use
  Company Number: US-UCBSA-2023061089

PATIENT
  Age: 61 Year
  Sex: Male

DRUGS (1)
  1. LACOSAMIDE [Suspect]
     Active Substance: LACOSAMIDE
     Indication: Seizure
     Dosage: 100 MILLIGRAM, 2X/DAY (BID)

REACTIONS (7)
  - Seizure [Not Recovered/Not Resolved]
  - Meningioma surgery [Not Recovered/Not Resolved]
  - Meningioma [Not Recovered/Not Resolved]
  - Corrective lens user [Not Recovered/Not Resolved]
  - Cough [Unknown]
  - Product availability issue [Unknown]
  - Therapy interrupted [Unknown]

NARRATIVE: CASE EVENT DATE: 20230701
